FAERS Safety Report 8188688-3 (Version None)
Quarter: 2012Q1

REPORT INFORMATION
  Report Type: 
  Country: None (occurrence: None)
  Receive Date: 20120306
  Receipt Date: 20120224
  Transmission Date: 20120608
  Serious: Yes (Death, Hospitalization, Other)
  Sender: FDA-Public Use
  Company Number: ES-ELI_LILLY_AND_COMPANY-ES201202007408

PATIENT
  Sex: Female
  Weight: 61 kg

DRUGS (4)
  1. CALCIUM CARBONATE [Concomitant]
  2. ENANTYUM [Concomitant]
     Indication: PAIN
     Dosage: UNK, PRN
     Route: 048
     Dates: end: 20120201
  3. FORTEO [Suspect]
     Indication: OSTEOPOROSIS
     Dosage: 20 UG, QD
     Route: 058
     Dates: start: 20100515, end: 20120201
  4. OMEPRAZOLE [Concomitant]
     Indication: GASTROINTESTINAL DISORDER
     Dosage: 1 DF, QD
     Route: 048
     Dates: end: 20120201

REACTIONS (8)
  - MYOCARDIAL INFARCTION [None]
  - PATELLA FRACTURE [None]
  - PAIN IN EXTREMITY [None]
  - FALL [None]
  - SPEECH DISORDER [None]
  - MASTICATION DISORDER [None]
  - HYPOXIA [None]
  - OEDEMA PERIPHERAL [None]
